FAERS Safety Report 6355609-5 (Version None)
Quarter: 2009Q3

REPORT INFORMATION
  Report Type: 
  Country: None (occurrence: None)
  Receive Date: 20090909
  Receipt Date: 20090826
  Transmission Date: 20100115
  Serious: Yes (Hospitalization)
  Sender: FDA-Public Use
  Company Number: WAES 0812ITA00005

PATIENT
  Age: 63 Year
  Sex: Male

DRUGS (7)
  1. CAP VORINOSTAT [Suspect]
     Indication: MYCOSIS FUNGOIDES
     Dosage: 400 MG/DAILY
     Route: 048
     Dates: start: 20081028, end: 20090120
  2. AMLODIPINE BESYLATE [Concomitant]
  3. CETIRIZINE HYDROCHLORIDE [Concomitant]
  4. FENOFIBRATE [Concomitant]
  5. GLICLAZIDE [Concomitant]
  6. LANSOPRAZOLE [Concomitant]
  7. NEBIVOLOL [Concomitant]

REACTIONS (14)
  - ASTHENIA [None]
  - BLOOD LACTATE DEHYDROGENASE INCREASED [None]
  - BLOOD UREA INCREASED [None]
  - DIASTOLIC DYSFUNCTION [None]
  - ELECTROCARDIOGRAM ST SEGMENT DEPRESSION [None]
  - ELECTROCARDIOGRAM T WAVE INVERSION [None]
  - HAEMOGLOBIN DECREASED [None]
  - HYPERGLYCAEMIA [None]
  - HYPERTENSION [None]
  - MYCOSIS FUNGOIDES [None]
  - NAUSEA [None]
  - PLATELET COUNT DECREASED [None]
  - VOMITING [None]
  - WHITE BLOOD CELL COUNT DECREASED [None]
